FAERS Safety Report 10337265 (Version 1)
Quarter: 2014Q3

REPORT INFORMATION
  Report Type: Spontaneous
  Country: GB (occurrence: GB)
  Receive Date: 20140723
  Receipt Date: 20140723
  Transmission Date: 20150326
  Serious: Yes (Disabling, Other)
  Sender: FDA-Public Use
  Company Number: GB-MYLANLABS-2014S1016939

PATIENT
  Sex: Male

DRUGS (2)
  1. ISOTRETINOIN [Suspect]
     Active Substance: ISOTRETINOIN
     Route: 048
     Dates: start: 20140606
  2. TRAMADOL [Concomitant]
     Active Substance: TRAMADOL
     Indication: SCIATICA
     Route: 048

REACTIONS (3)
  - Paraesthesia [Unknown]
  - Neuropathy peripheral [Unknown]
  - Sensory loss [Unknown]

NARRATIVE: CASE EVENT DATE: 20140617
